FAERS Safety Report 10005180 (Version 1)
Quarter: 2014Q1

REPORT INFORMATION
  Report Type: Spontaneous
  Country: US (occurrence: US)
  Receive Date: 20140312
  Receipt Date: 20140312
  Transmission Date: 20141002
  Serious: Yes (Hospitalization, Other)
  Sender: FDA-Public Use
  Company Number: PHHY2014US027004

PATIENT
  Age: 17 Year
  Sex: Male

DRUGS (3)
  1. BUPROPION [Suspect]
     Indication: DRUG ABUSE
  2. CITALOPRAM [Suspect]
  3. IBUPROFEN [Suspect]

REACTIONS (2)
  - Convulsion [Unknown]
  - Drug abuse [Unknown]
